FAERS Safety Report 7339689-6 (Version None)
Quarter: 2011Q1

REPORT INFORMATION
  Report Type: 
  Country: None (occurrence: None)
  Receive Date: 20110303
  Receipt Date: 20110303
  Transmission Date: 20110831
  Serious: Yes (Life-Threatening)
  Sender: FDA-Public Use
  Company Number: None

PATIENT
  Sex: Female
  Weight: 49.8957 kg

DRUGS (3)
  1. NIASPAN [Suspect]
     Indication: BLOOD CHOLESTEROL INCREASED
     Dosage: 500MG QHS ORAL
     Route: 048
     Dates: start: 20110211
  2. SYNTHROID [Concomitant]
  3. LOSARTAN POTASSIUM [Concomitant]

REACTIONS (4)
  - OCULAR HYPERAEMIA [None]
  - BURNING SENSATION [None]
  - HOT FLUSH [None]
  - DYSPNOEA [None]
